FAERS Safety Report 21705812 (Version 1)
Quarter: 2022Q4

REPORT INFORMATION
  Report Type: Report from Study
  Country: PL (occurrence: PL)
  Receive Date: 20221209
  Receipt Date: 20221209
  Transmission Date: 20230112
  Serious: Yes (Hospitalization)
  Sender: FDA-Public Use
  Company Number: PL-ABBVIE-4224325

PATIENT
  Age: 73 Year
  Sex: Female

DRUGS (2)
  1. VENETOCLAX [Suspect]
     Active Substance: VENETOCLAX
     Indication: Product used for unknown indication
     Dosage: 06/NOV/2022, THE PATIENT RECEIVED LAST DOSE OF VENETOCLAX PRIOR TO SAE?ONSET.
     Route: 065
     Dates: start: 20220413, end: 20221106
  2. RITUXIMAB [Concomitant]
     Active Substance: RITUXIMAB
     Indication: Product used for unknown indication
     Dosage: 02/NOV/2022, THE PATIENT RECEIVED LAST DOSE OF RITUXIMAB PRIOR TO SAE ONSET.
     Route: 065
     Dates: start: 20220518

REACTIONS (1)
  - Respiratory tract infection [Not Recovered/Not Resolved]

NARRATIVE: CASE EVENT DATE: 20221116
